FAERS Safety Report 5216752-7 (Version None)
Quarter: 2007Q1

REPORT INFORMATION
  Report Type: 
  Country: None (occurrence: None)
  Receive Date: 20070118
  Receipt Date: 20070103
  Transmission Date: 20070707
  Serious: Yes (Other)
  Sender: FDA-Public Use
  Company Number: 2006BI007412

PATIENT
  Age: 39 Year
  Sex: Female

DRUGS (5)
  1. AVONEX [Suspect]
     Indication: RELAPSING-REMITTING MULTIPLE SCLEROSIS
     Dosage: 30 UG; QW; IM
     Route: 030
     Dates: start: 20040518, end: 20060601
  2. AVONEX [Suspect]
     Indication: RELAPSING-REMITTING MULTIPLE SCLEROSIS
     Dosage: 30 UG;QW;IM
     Route: 030
     Dates: start: 20060601, end: 20061025
  3. AVONEX [Suspect]
     Indication: RELAPSING-REMITTING MULTIPLE SCLEROSIS
     Dosage: 30 UG;QW; IM
     Route: 030
     Dates: start: 20061108
  4. AMITRYPTYLINE [Concomitant]
  5. GABAPENTIN [Concomitant]

REACTIONS (6)
  - HYPOGLYCAEMIA [None]
  - MYALGIA [None]
  - NEUTROPHIL COUNT DECREASED [None]
  - THROAT IRRITATION [None]
  - VIRAEMIA [None]
  - WHITE BLOOD CELL COUNT DECREASED [None]
